FAERS Safety Report 22086194 (Version 1)
Quarter: 2023Q1

REPORT INFORMATION
  Report Type: Spontaneous
  Country: RU (occurrence: RU)
  Receive Date: 20230310
  Receipt Date: 20230310
  Transmission Date: 20230418
  Serious: Yes (Other)
  Sender: FDA-Public Use
  Company Number: None

PATIENT
  Age: 13 Year
  Sex: Female
  Weight: 46 kg

DRUGS (5)
  1. TRESIBA [Suspect]
     Active Substance: INSULIN DEGLUDEC
     Indication: Type 1 diabetes mellitus
     Dosage: 27 IU
     Route: 058
     Dates: start: 20230118, end: 20230216
  2. HALOPERIDOL [Concomitant]
     Active Substance: HALOPERIDOL
     Indication: Emotional disorder
     Dosage: 5 DROPS TWICE A DAY
     Route: 048
     Dates: start: 202212
  3. NICOTINIC ACID [Concomitant]
     Active Substance: NIACIN
     Indication: Emotional disorder
     Dosage: 2 TABLETS TWICE A DAY
     Route: 048
     Dates: start: 202212
  4. BIPERIDEN [Concomitant]
     Active Substance: BIPERIDEN
     Indication: Emotional disorder
     Dosage: 1 TABLET THREE TIMES A DAY
     Route: 048
     Dates: start: 202212
  5. PANTOHAM [Concomitant]
     Indication: Emotional disorder
     Dosage: 1 TABLET IN THE MORNING
     Route: 048
     Dates: start: 202212

REACTIONS (1)
  - Rash maculo-papular [Recovering/Resolving]

NARRATIVE: CASE EVENT DATE: 20230131
